FAERS Safety Report 18197444 (Version 1)
Quarter: 2020Q3

REPORT INFORMATION
  Report Type: Spontaneous
  Country: US (occurrence: US)
  Receive Date: 20200825
  Receipt Date: 20200825
  Transmission Date: 20201103
  Serious: Yes (Hospitalization)
  Sender: FDA-Public Use
  Company Number: None

PATIENT
  Age: 65 Year
  Sex: Male

DRUGS (21)
  1. ASPIRIN EC [Concomitant]
     Active Substance: ASPIRIN
  2. AMOX/K CLAV [Suspect]
     Active Substance: AMOXICILLIN\CLAVULANATE POTASSIUM
  3. METHOTREXATE. [Concomitant]
     Active Substance: METHOTREXATE
  4. PREGABALIN. [Concomitant]
     Active Substance: PREGABALIN
  5. HYDROCO/APAP [Suspect]
     Active Substance: ACETAMINOPHEN\HYDROCODONE
  6. LISINOPRIL. [Concomitant]
     Active Substance: LISINOPRIL
  7. ZOMIG [Concomitant]
     Active Substance: ZOLMITRIPTAN
  8. SEROQUEL [Concomitant]
     Active Substance: QUETIAPINE FUMARATE
  9. TRAMADOL HCL [Concomitant]
     Active Substance: TRAMADOL HYDROCHLORIDE
  10. ADVIL [Suspect]
     Active Substance: IBUPROFEN
  11. BACLOFEN. [Concomitant]
     Active Substance: BACLOFEN
  12. ISOSORB MONO [Concomitant]
     Active Substance: ISOSORBIDE MONONITRATE
  13. NEO/POLY/DEX [Concomitant]
     Active Substance: DEXAMETHASONE\NEOMYCIN\POLYMYXIN B SULFATE
  14. ATORVASTATIN [Concomitant]
     Active Substance: ATORVASTATIN
  15. FOLIC ACID. [Concomitant]
     Active Substance: FOLIC ACID
  16. KETOROLAC [Concomitant]
     Active Substance: KETOROLAC TROMETHAMINE
  17. DULOXETINE. [Concomitant]
     Active Substance: DULOXETINE
  18. LYRICA [Concomitant]
     Active Substance: PREGABALIN
  19. HUMIRA [Suspect]
     Active Substance: ADALIMUMAB
     Indication: RHEUMATOID ARTHRITIS
     Route: 058
     Dates: start: 20151025
  20. HYDROXYCHLOR [Concomitant]
     Active Substance: HYDROXYCHLOROQUINE
  21. METHYLPRED [Concomitant]
     Active Substance: METHYLPREDNISOLONE

REACTIONS (1)
  - Cerebrovascular accident [None]

NARRATIVE: CASE EVENT DATE: 202008
